FAERS Safety Report 7266847-1 (Version None)
Quarter: 2011Q1

REPORT INFORMATION
  Report Type: 
  Country: None (occurrence: None)
  Receive Date: 20110201
  Receipt Date: 20110120
  Transmission Date: 20110831
  Serious: Yes (Hospitalization)
  Sender: FDA-Public Use
  Company Number: DE-SANOFI-AVENTIS-2011SA003756

PATIENT
  Age: 71 Year
  Sex: Male
  Weight: 90 kg

DRUGS (22)
  1. CLEXANE [Suspect]
     Route: 058
     Dates: start: 20091128, end: 20091208
  2. EMBOLEX [Concomitant]
     Route: 065
     Dates: start: 20091201, end: 20091215
  3. BICALUTAMIDE [Concomitant]
     Indication: PROSTATE CANCER
     Route: 048
     Dates: start: 20080301
  4. ACETAMINOPHEN [Concomitant]
     Route: 048
     Dates: start: 20091113, end: 20091113
  5. NOVAMINSULFON [Concomitant]
     Dosage: BEI BEDARF 3X30  NOVAMINSULFON-TROPFEN (30 TROPFEN~750MG)
     Route: 048
     Dates: start: 20091127
  6. CLOPIDOGREL [Concomitant]
     Route: 048
     Dates: start: 20090301, end: 20090801
  7. OMEPRAZOLE [Concomitant]
     Route: 048
     Dates: start: 20091118, end: 20091128
  8. OXYGESIC [Concomitant]
     Dosage: BEI BEDARF BIS 6X1 KAPSEL OXYGESIC AKUT
     Route: 048
     Dates: start: 20091113, end: 20091128
  9. CEFUROXIME [Concomitant]
     Route: 042
     Dates: start: 20091111, end: 20091111
  10. OXYGESIC [Concomitant]
     Route: 048
     Dates: start: 20091113, end: 20091121
  11. SIMVASTATIN [Concomitant]
     Route: 048
     Dates: start: 20070101
  12. TORSEMIDE [Concomitant]
     Route: 048
  13. AMLODIPINE/VALSARTAN [Concomitant]
     Dosage: 1 DF= 10MG AMLODIPIN + 160MG VALSARTAN
     Route: 048
     Dates: start: 20090301
  14. BERLOSIN [Concomitant]
     Route: 048
     Dates: start: 20091112, end: 20091121
  15. EMBOLEX [Concomitant]
     Route: 058
     Dates: start: 20091111, end: 20091127
  16. CEFUROXIME [Concomitant]
     Indication: INFECTION PROPHYLAXIS
     Route: 048
     Dates: start: 20091118, end: 20091128
  17. ALLOPURINOL [Concomitant]
     Indication: HYPERURICAEMIA
     Route: 048
  18. DIOVANE [Concomitant]
     Route: 048
     Dates: start: 20091127
  19. ACETYLSALICYLIC ACID SRT [Suspect]
     Route: 048
     Dates: start: 20081001
  20. BISOPROLOL [Concomitant]
     Route: 048
     Dates: start: 20090301
  21. DICLOFENAC RESINATE [Concomitant]
     Route: 048
     Dates: start: 20091112, end: 20091128
  22. LACTULOSE [Concomitant]
     Indication: CONSTIPATION
     Route: 048
     Dates: start: 20091115, end: 20091128

REACTIONS (4)
  - PAIN [None]
  - IMPAIRED HEALING [None]
  - WOUND COMPLICATION [None]
  - BLOODY DISCHARGE [None]
